FAERS Safety Report 9924089 (Version 1)
Quarter: 2014Q1

REPORT INFORMATION
  Report Type: Report from Study
  Country: FR (occurrence: FR)
  Receive Date: 20140226
  Receipt Date: 20140226
  Transmission Date: 20141002
  Serious: Yes (Hospitalization)
  Sender: FDA-Public Use
  Company Number: FR-ROCHE-1351133

PATIENT
  Sex: Male

DRUGS (23)
  1. RITUXIMAB [Suspect]
     Indication: RHEUMATOID ARTHRITIS
     Dosage: DAY 1
     Route: 065
     Dates: start: 20071204
  2. RITUXIMAB [Suspect]
     Dosage: DAY 15
     Route: 065
     Dates: start: 20071220
  3. RITUXIMAB [Suspect]
     Dosage: DAY 1
     Route: 065
     Dates: start: 20080915
  4. RITUXIMAB [Suspect]
     Dosage: DAY 15
     Route: 065
     Dates: start: 20080929
  5. RITUXIMAB [Suspect]
     Dosage: DAY 1
     Route: 065
     Dates: start: 20100527
  6. RITUXIMAB [Suspect]
     Dosage: DAY 15
     Route: 065
     Dates: start: 20100610
  7. RITUXIMAB [Suspect]
     Dosage: DAY 1
     Route: 065
     Dates: start: 20110301
  8. RITUXIMAB [Suspect]
     Dosage: DAY 15
     Route: 065
     Dates: start: 20110315
  9. RITUXIMAB [Suspect]
     Dosage: DAY 1
     Route: 065
     Dates: start: 20111003
  10. RITUXIMAB [Suspect]
     Dosage: DAY 15
     Route: 065
     Dates: start: 20111105
  11. RITUXIMAB [Suspect]
     Dosage: DAY 1
     Route: 065
     Dates: start: 20120502
  12. RITUXIMAB [Suspect]
     Dosage: DAY 15
     Route: 065
     Dates: start: 20120515
  13. RITUXIMAB [Suspect]
     Dosage: DAY 1
     Route: 065
     Dates: start: 20121204
  14. RITUXIMAB [Suspect]
     Dosage: DAY 15
     Route: 065
     Dates: start: 20121218
  15. RITUXIMAB [Suspect]
     Dosage: DAY 1
     Route: 065
     Dates: start: 20130711
  16. RITUXIMAB [Suspect]
     Dosage: DAY 15
     Route: 065
     Dates: start: 20130725
  17. METHOTREXATE [Concomitant]
     Dosage: WEEKLY
     Route: 065
     Dates: end: 20071219
  18. CORTANCYL [Concomitant]
     Dosage: DAILY
     Route: 065
  19. CORTANCYL [Concomitant]
     Dosage: DAILY
     Route: 065
  20. CORTANCYL [Concomitant]
     Dosage: DAILY
     Route: 065
  21. CORTANCYL [Concomitant]
     Dosage: DAILY
     Route: 065
  22. CORTANCYL [Concomitant]
     Dosage: DAILY
     Route: 065
  23. CORTANCYL [Concomitant]
     Dosage: DAILY
     Route: 065

REACTIONS (8)
  - Bone pain [Unknown]
  - Thrombocytopenia [Recovered/Resolved]
  - Musculoskeletal pain [Recovered/Resolved]
  - Infection [Recovered/Resolved]
  - Xanthomatosis [Recovered/Resolved]
  - Tooth extraction [Recovered/Resolved]
  - Back pain [Not Recovered/Not Resolved]
  - Hyperglycaemia [Not Recovered/Not Resolved]
